FAERS Safety Report 23912195 (Version 1)
Quarter: 2024Q2

REPORT INFORMATION
  Report Type: Report from Study
  Country: US (occurrence: US)
  Receive Date: 20240528
  Receipt Date: 20240528
  Transmission Date: 20240715
  Serious: No
  Sender: FDA-Public Use
  Company Number: US-AstraZeneca-CH-00630514A

PATIENT
  Age: 12 Year
  Sex: Female

DRUGS (1)
  1. STRENSIQ [Suspect]
     Active Substance: ASFOTASE ALFA
     Indication: Hypophosphatasia
     Dosage: 76 MILLIGRAM, TIW
     Route: 058
     Dates: start: 20240513

REACTIONS (3)
  - Injection site pain [Not Recovered/Not Resolved]
  - Injection site swelling [Not Recovered/Not Resolved]
  - Splenomegaly [Unknown]

NARRATIVE: CASE EVENT DATE: 20240516
